FAERS Safety Report 9781272 (Version 3)
Quarter: 2015Q3

REPORT INFORMATION
  Report Type: Spontaneous
  Country: US (occurrence: US)
  Receive Date: 20131224
  Receipt Date: 20150721
  Transmission Date: 20151125
  Serious: No
  Sender: FDA-Public Use
  Company Number: US-GILEAD-2010-0030825

PATIENT
  Age: 36 Year
  Sex: Male
  Weight: 46.58 kg

DRUGS (11)
  1. ADVAIR HFA [Concomitant]
     Active Substance: FLUTICASONE PROPIONATE\SALMETEROL XINAFOATE
     Indication: CYSTIC FIBROSIS
  2. MEPHYTON [Concomitant]
     Active Substance: PHYTONADIONE
  3. FOSAMAX [Concomitant]
     Active Substance: ALENDRONATE SODIUM
  4. ACTOS [Concomitant]
     Active Substance: PIOGLITAZONE HYDROCHLORIDE
     Indication: CYSTIC FIBROSIS RELATED DIABETES
  5. ERGOCALCIFEROL. [Concomitant]
     Active Substance: ERGOCALCIFEROL
  6. SOFTGEL [Concomitant]
     Active Substance: ALPHA-TOCOPHEROL\ASCORBIC ACID\CHOLECALCIFEROL\COPPER\CYANOCOBALAMIN\FOLIC ACID\LUTEIN\OMEGA-3 FATTY ACIDS\PYRIDOXINE HYDROCHLORIDE\TAURINE\VITAMIN A PALMITATE\ZEAXANTHIN\ZINC PICOLINATE
  7. CAYSTON [Suspect]
     Active Substance: AZTREONAM
  8. CITRACAL [Concomitant]
     Active Substance: CALCIUM CITRATE
  9. PULMOZYME [Concomitant]
     Active Substance: DORNASE ALFA
     Indication: CYSTIC FIBROSIS
  10. CARDIZEM [Concomitant]
     Active Substance: DILTIAZEM HYDROCHLORIDE
  11. CREON 24 [Concomitant]
     Active Substance: AMYLASE\LIPASE\PROTEASE

REACTIONS (4)
  - Chest discomfort [Recovered/Resolved]
  - Influenza like illness [Recovered/Resolved]
  - Arthralgia [Recovered/Resolved]
  - Back pain [Recovered/Resolved]

NARRATIVE: CASE EVENT DATE: 20100707
